FAERS Safety Report 16168341 (Version 1)
Quarter: 2019Q2

REPORT INFORMATION
  Report Type: Spontaneous
  Country: FR (occurrence: FR)
  Receive Date: 20190408
  Receipt Date: 20190408
  Transmission Date: 20190711
  Serious: Yes (Death, Other)
  Sender: FDA-Public Use
  Company Number: FR-SA-2019SA095790

PATIENT
  Age: 55 Year
  Sex: Female

DRUGS (5)
  1. GEMCITABINE HYDROCHLORIDE. [Suspect]
     Active Substance: GEMCITABINE HYDROCHLORIDE
     Indication: UTERINE LEIOMYOSARCOMA
     Dosage: UNK
     Dates: start: 201210, end: 201212
  2. TRABECTEDIN [Suspect]
     Active Substance: TRABECTEDIN
     Indication: UTERINE LEIOMYOSARCOMA
     Dosage: UNK
     Dates: start: 201212, end: 201310
  3. VOTRIENT [Concomitant]
     Active Substance: PAZOPANIB HYDROCHLORIDE
     Dosage: UNK
  4. DOCETAXEL. [Suspect]
     Active Substance: DOCETAXEL
     Indication: UTERINE LEIOMYOSARCOMA
     Dosage: UNK
     Dates: start: 201210, end: 201212
  5. IFOSFAMIDE. [Suspect]
     Active Substance: IFOSFAMIDE
     Indication: UTERINE LEIOMYOSARCOMA
     Dosage: UNK

REACTIONS (8)
  - General physical health deterioration [Fatal]
  - Drug intolerance [Unknown]
  - Disease progression [Fatal]
  - Neoplasm progression [Unknown]
  - Therapeutic response decreased [Unknown]
  - Transaminases increased [Unknown]
  - Neutropenia [Unknown]
  - Drug ineffective [Unknown]
